FAERS Safety Report 5517638-0 (Version None)
Quarter: 2007Q4

REPORT INFORMATION
  Report Type: 
  Country: None (occurrence: None)
  Receive Date: 20071114
  Receipt Date: 20071108
  Transmission Date: 20080405
  Serious: Yes (Other)
  Sender: FDA-Public Use
  Company Number: US-ROXANE LABORATORIES, INC-2007-BP-24217RO

PATIENT
  Age: 48 Year
  Sex: Male

DRUGS (5)
  1. LOPERAMIDE HCL [Suspect]
     Indication: DIARRHOEA
  2. DICYCLOMINE [Suspect]
     Indication: DIARRHOEA
  3. STEROIDS [Concomitant]
  4. FLAGYL [Concomitant]
  5. CIPROFLOXACIN [Concomitant]
     Indication: BACTERIA STOOL IDENTIFIED

REACTIONS (4)
  - BACTERIA STOOL IDENTIFIED [None]
  - DRUG INEFFECTIVE [None]
  - LARGE INTESTINE PERFORATION [None]
  - MEGACOLON [None]
